FAERS Safety Report 10948035 (Version 1)
Quarter: 2015Q1

REPORT INFORMATION
  Report Type: Spontaneous
  Country: GB (occurrence: GB)
  Receive Date: 20150324
  Receipt Date: 20150324
  Transmission Date: 20150721
  Serious: Yes (Other)
  Sender: FDA-Public Use
  Company Number: GB-ACCORD-029416

PATIENT
  Age: 61 Year
  Sex: Female
  Weight: 62 kg

DRUGS (10)
  1. CLIMAGEST [Concomitant]
     Active Substance: ESTRADIOL VALERATE\NORETHINDRONE ACETATE
  2. METHOTREXATE [Suspect]
     Active Substance: METHOTREXATE
     Indication: POLYMYALGIA RHEUMATICA
     Dosage: STARTED WITH 7.5 MG WEEKLY FROM 16-OCT-2014 AND DOSE INCREASED TO 15 MG WEEKLY FROM UNKNOWN DATE.
     Dates: start: 20141016, end: 20150101
  3. ADCAL-D3 [Concomitant]
     Active Substance: CALCIUM CARBONATE\CHOLECALCIFEROL
  4. RANITIDINE [Concomitant]
     Active Substance: RANITIDINE\RANITIDINE HYDROCHLORIDE
  5. SOLIFENACIN/SOLIFENACIN SUCCINATE [Concomitant]
  6. NAPROXEN. [Concomitant]
     Active Substance: NAPROXEN
  7. AMITRIPTYLINE [Concomitant]
     Active Substance: AMITRIPTYLINE
  8. DOMPERIDONE [Concomitant]
     Active Substance: DOMPERIDONE
  9. PREDNISOLONE. [Concomitant]
     Active Substance: PREDNISOLONE
     Indication: POLYMYALGIA RHEUMATICA
     Dosage: 4.5MG DAILY WHICH DECREASED SLOWLY TO NIL BEWEEN OCTOBER AND DECEMBER
     Dates: start: 200408, end: 201412
  10. FOLIC ACID. [Concomitant]
     Active Substance: FOLIC ACID

REACTIONS (5)
  - Skin necrosis [Recovering/Resolving]
  - Skin discolouration [Recovering/Resolving]
  - Asthenia [Recovering/Resolving]
  - Peripheral coldness [Recovering/Resolving]
  - Chillblains [Recovering/Resolving]

NARRATIVE: CASE EVENT DATE: 201412
